FAERS Safety Report 8968117 (Version 3)
Quarter: 2012Q4

REPORT INFORMATION
  Report Type: 
  Country: KR (occurrence: KR)
  Receive Date: 20121218
  Receipt Date: 20121231
  Transmission Date: 20130627
  Serious: Yes (Hospitalization)
  Sender: FDA-Public Use
  Company Number: KR-009507513-1212KOR006111

PATIENT
  Age: 53 Year
  Sex: Female

DRUGS (1)
  1. IMPLANON NXT [Suspect]
     Indication: CONTRACEPTION
     Dosage: UNK
     Dates: start: 20110129

REACTIONS (1)
  - Device dislocation [Unknown]
